FAERS Safety Report 8136503-6 (Version None)
Quarter: 2012Q1

REPORT INFORMATION
  Report Type: 
  Country: None (occurrence: None)
  Receive Date: 20120214
  Receipt Date: 20120131
  Transmission Date: 20120608
  Serious: Yes (Other)
  Sender: FDA-Public Use
  Company Number: HU-ROCHE-1037810

PATIENT
  Age: 7 Year
  Sex: Female

DRUGS (6)
  1. SOLU-MEDROL [Suspect]
     Indication: JUVENILE ARTHRITIS
     Dosage: REGIMEN 1
     Route: 042
  2. METHYLPREDNISOLONE [Suspect]
     Indication: PRODUCT USED FOR UNKNOWN INDICATION
     Route: 048
  3. ACTEMRA [Suspect]
     Indication: PRODUCT USED FOR UNKNOWN INDICATION
  4. SOLU-MEDROL [Suspect]
     Dosage: REGIMEN 2
     Route: 042
  5. ENBREL [Suspect]
     Indication: JUVENILE ARTHRITIS
  6. METHOTREXATE SODIUM [Suspect]
     Indication: PRODUCT USED FOR UNKNOWN INDICATION

REACTIONS (9)
  - VASCULITIS [None]
  - RASH PRURITIC [None]
  - IMPETIGO [None]
  - RASH PUSTULAR [None]
  - INFESTATION [None]
  - ROSACEA [None]
  - GASTROENTERITIS SALMONELLA [None]
  - RASH ERYTHEMATOUS [None]
  - DRUG INEFFECTIVE [None]
